FAERS Safety Report 21762538 (Version 1)
Quarter: 2022Q4

REPORT INFORMATION
  Report Type: Spontaneous
  Country: IN (occurrence: IN)
  Receive Date: 20221221
  Receipt Date: 20221221
  Transmission Date: 20230113
  Serious: Yes (Hospitalization, Disabling)
  Sender: FDA-Public Use
  Company Number: IN-MYLANLABS-2022M1140514

PATIENT
  Age: 38 Year
  Sex: Male

DRUGS (2)
  1. DICLOFENAC [Suspect]
     Active Substance: DICLOFENAC
     Indication: Abdominal pain
     Dosage: UNK, INTRA-ARTERIAL INJECTION OF DICLOFENAC IN LEFT CUBITAL FOSSA
     Route: 013
  2. DICLOFENAC [Suspect]
     Active Substance: DICLOFENAC
     Indication: Dysuria

REACTIONS (3)
  - Peripheral ischaemia [Recovering/Resolving]
  - Gangrene [Recovered/Resolved with Sequelae]
  - Incorrect route of product administration [Unknown]
